FAERS Safety Report 20326110 (Version 2)
Quarter: 2022Q1

REPORT INFORMATION
  Report Type: Spontaneous
  Country: US (occurrence: US)
  Receive Date: 20220112
  Receipt Date: 20220119
  Transmission Date: 20220423
  Serious: No
  Sender: FDA-Public Use
  Company Number: US-GLAXOSMITHKLINE-USCH2022001186

PATIENT
  Sex: Female

DRUGS (1)
  1. ADVIL PM [Suspect]
     Active Substance: DIPHENHYDRAMINE CITRATE\IBUPROFEN
     Indication: Sleep disorder due to a general medical condition
     Dosage: UNK

REACTIONS (4)
  - Fatigue [Unknown]
  - Pain in extremity [Unknown]
  - Product use in unapproved indication [Unknown]
  - Product complaint [Unknown]
